FAERS Safety Report 8314891-5 (Version None)
Quarter: 2012Q1

REPORT INFORMATION
  Report Type: 
  Country: None (occurrence: None)
  Receive Date: 20120315
  Receipt Date: 20110524
  Transmission Date: 20120608
  Serious: Yes (Other)
  Sender: FDA-Public Use
  Company Number: PHHY2011US37871

PATIENT
  Age: 35 Year
  Sex: Female
  Weight: 45.4 kg

DRUGS (6)
  1. ARICEPT [Concomitant]
  2. ZANAFLEX [Concomitant]
  3. ZANAFLEX [Concomitant]
  4. TOPAMAX [Concomitant]
  5. SUCRALFATE [Concomitant]
  6. GILENYA [Suspect]
     Indication: RELAPSING-REMITTING MULTIPLE SCLEROSIS
     Dosage: 0.5 MG, QD, ORAL
     Route: 048
     Dates: start: 20110426, end: 20110429

REACTIONS (3)
  - HEART RATE DECREASED [None]
  - HYPOTENSION [None]
  - SOMNOLENCE [None]
